FAERS Safety Report 6588309-7 (Version None)
Quarter: 2010Q1

REPORT INFORMATION
  Report Type: 
  Country: None (occurrence: None)
  Receive Date: 20100218
  Receipt Date: 20100208
  Transmission Date: 20100710
  Serious: Yes (Death, Hospitalization)
  Sender: FDA-Public Use
  Company Number: US-ROCHE-677410

PATIENT
  Sex: Female
  Weight: 63.5 kg

DRUGS (3)
  1. CAPECITABINE [Suspect]
     Dosage: ROUTE: BY MOUTH
     Route: 048
     Dates: start: 20091030
  2. CAPECITABINE [Suspect]
     Dosage: DOSE: TWO TABS BID
     Route: 048
     Dates: start: 20091116, end: 20091229
  3. CAPECITABINE [Suspect]
     Route: 048
     Dates: end: 20100131

REACTIONS (2)
  - DEATH [None]
  - NEOPLASM MALIGNANT [None]
